FAERS Safety Report 16778563 (Version 5)
Quarter: 2019Q4

REPORT INFORMATION
  Report Type: Report from Study
  Country: US (occurrence: US)
  Receive Date: 20190906
  Receipt Date: 20191011
  Transmission Date: 20200122
  Serious: Yes (Hospitalization, Other)
  Sender: FDA-Public Use
  Company Number: US-ROCHE-2393557

PATIENT
  Age: 69 Year
  Sex: Female
  Weight: 84.9 kg

DRUGS (2)
  1. PREDNISONE. [Concomitant]
     Active Substance: PREDNISONE
  2. ESBRIET [Suspect]
     Active Substance: PIRFENIDONE
     Indication: IDIOPATHIC PULMONARY FIBROSIS
     Dosage: PALE YELLOW TABLETS
     Route: 048
     Dates: start: 201903, end: 201908

REACTIONS (8)
  - Vasculitis [Unknown]
  - Rash [Recovering/Resolving]
  - Limb mass [Recovered/Resolved]
  - Malaise [Unknown]
  - Thermal burn [Unknown]
  - Mass [Unknown]
  - Pruritus [Recovered/Resolved]
  - Arthropod bite [Recovered/Resolved]

NARRATIVE: CASE EVENT DATE: 201907
